FAERS Safety Report 18915946 (Version 2)
Quarter: 2021Q2

REPORT INFORMATION
  Report Type: Spontaneous
  Country: US (occurrence: US)
  Receive Date: 20210219
  Receipt Date: 20210420
  Transmission Date: 20210717
  Serious: Yes (Death)
  Sender: FDA-Public Use
  Company Number: US-MAYNE PHARMA-2021MYN000085

PATIENT
  Sex: Female

DRUGS (1)
  1. CLOZAPINE. [Suspect]
     Active Substance: CLOZAPINE
     Indication: PRODUCT USED FOR UNKNOWN INDICATION
     Dosage: UNK
     Route: 065

REACTIONS (4)
  - Multiple organ dysfunction syndrome [Fatal]
  - Hepatic cirrhosis [Fatal]
  - Autoimmune disorder [Fatal]
  - Acute respiratory distress syndrome [Fatal]
